FAERS Safety Report 6841388-1 (Version None)
Quarter: 2010Q3

REPORT INFORMATION
  Report Type: 
  Country: None (occurrence: None)
  Receive Date: 20100714
  Receipt Date: 20070828
  Transmission Date: 20110219
  Serious: No
  Sender: FDA-Public Use
  Company Number: US-PFIZER INC-2007053666

PATIENT
  Sex: Female
  Weight: 77.1 kg

DRUGS (13)
  1. CHANTIX [Suspect]
     Indication: EX-TOBACCO USER
     Dosage: EVERYDAY
     Dates: start: 20070201, end: 20070601
  2. PLAVIX [Concomitant]
  3. LISINOPRIL [Concomitant]
  4. VERAPAMIL [Concomitant]
  5. VYTORIN [Concomitant]
  6. ACETYLSALICYLIC ACID [Concomitant]
  7. TEMAZEPAM [Concomitant]
  8. DIAZEPAM [Concomitant]
  9. NASONEX [Concomitant]
  10. COMBIVENT [Concomitant]
  11. MULTI-VITAMINS [Concomitant]
  12. OYSTER SHELL CALCIUM [Concomitant]
  13. BIOTIN [Concomitant]

REACTIONS (6)
  - BLADDER PAIN [None]
  - BLADDER SPASM [None]
  - DRUG INEFFECTIVE [None]
  - NOCTURIA [None]
  - URINARY TRACT INFECTION [None]
  - WEIGHT INCREASED [None]
